FAERS Safety Report 7428637-6 (Version None)
Quarter: 2011Q2

REPORT INFORMATION
  Report Type: 
  Country: None (occurrence: None)
  Receive Date: 20110413
  Receipt Date: 20110323
  Transmission Date: 20111010
  Serious: Yes (Death)
  Sender: FDA-Public Use
  Company Number: CIO11006299

PATIENT
  Age: 9 Month
  Sex: Male

DRUGS (5)
  1. DEXTROMETHORPHAN HYDROBROMIDE [Suspect]
  2. PSEUDOEPHEDRINE HCL [Suspect]
  3. PARACETAMOL (PARACETAMOL UNK UNK) UNKNOWN, UNK [Suspect]
  4. CHLORPHENIRAMINE MALEATE [Suspect]
  5. PHENYLPROPANOLAMINE HCL [Suspect]

REACTIONS (19)
  - CRYING [None]
  - VOMITING [None]
  - APNOEA [None]
  - BODY TEMPERATURE DECREASED [None]
  - IRRITABILITY [None]
  - CYANOSIS [None]
  - INSOMNIA [None]
  - TACHYCARDIA [None]
  - DRUG SCREEN POSITIVE [None]
  - TOXICITY TO VARIOUS AGENTS [None]
  - MUSCULOSKELETAL STIFFNESS [None]
  - BLOOD POTASSIUM INCREASED [None]
  - CARDIO-RESPIRATORY ARREST [None]
  - PYREXIA [None]
  - PERIPHERAL COLDNESS [None]
  - BLOOD PH DECREASED [None]
  - BLOOD GLUCOSE DECREASED [None]
  - COUGH [None]
  - BLOOD SODIUM INCREASED [None]
